FAERS Safety Report 6659925-9 (Version None)
Quarter: 2010Q1

REPORT INFORMATION
  Report Type: 
  Country: None (occurrence: None)
  Receive Date: 20100326
  Receipt Date: 20100311
  Transmission Date: 20100710
  Serious: Yes (Other)
  Sender: FDA-Public Use
  Company Number: AUR-APL-2010-00751

PATIENT
  Age: 65 Year
  Sex: Female

DRUGS (3)
  1. LISINOPRIL [Suspect]
     Indication: HYPERTENSION
     Dosage: 2.5MG - DAILY - ORAL
     Route: 048
     Dates: end: 20100218
  2. ALLOPURINOL [Suspect]
     Indication: BLOOD URIC ACID INCREASED
     Dosage: 300MG - DAILY - ORAL
     Route: 048
     Dates: start: 20100209, end: 20100218
  3. LEVOTHYROXINE SODIUM [Concomitant]

REACTIONS (5)
  - EYE SWELLING [None]
  - HEAD BANGING [None]
  - MUSCULOSKELETAL STIFFNESS [None]
  - RASH PRURITIC [None]
  - WHEEZING [None]
